FAERS Safety Report 5345365-1 (Version None)
Quarter: 2007Q2

REPORT INFORMATION
  Report Type: 
  Country: None (occurrence: None)
  Receive Date: 20070605
  Receipt Date: 20070525
  Transmission Date: 20071010
  Serious: Yes (Other)
  Sender: FDA-Public Use
  Company Number: PHFR2007GB01094

PATIENT
  Age: 59 Year
  Sex: Female
  Weight: 86 kg

DRUGS (5)
  1. FEMARA [Suspect]
     Indication: BREAST CANCER
     Dosage: 2.5MG/DAY
     Route: 048
     Dates: start: 20060123
  2. LISINOPRIL [Concomitant]
     Indication: HYPERTENSION
     Dosage: 10MG DAILY
     Route: 048
     Dates: start: 20010917
  3. FRUSEMIDE [Concomitant]
     Indication: HYPERTENSION
     Dosage: 40MG DAILY
     Route: 048
     Dates: start: 20011207
  4. OXYBUTYNIN CHLORIDE [Concomitant]
     Indication: URINARY TRACT DISORDER
     Dosage: 10MG/DAY
     Route: 048
     Dates: start: 20030804
  5. ARTHROTEC [Concomitant]
     Indication: ARTHRALGIA
     Dosage: 50 MG, BID
     Route: 048
     Dates: start: 20060725

REACTIONS (2)
  - ARTHRALGIA [None]
  - CHOLECYSTECTOMY [None]
